FAERS Safety Report 8400841-X (Version None)
Quarter: 2012Q2

REPORT INFORMATION
  Report Type: 
  Country: None (occurrence: None)
  Receive Date: 20120531
  Receipt Date: 20120521
  Transmission Date: 20120825
  Serious: Yes (Hospitalization)
  Sender: FDA-Public Use
  Company Number: JP-AMGEN-JPNSP2012032733

PATIENT
  Age: 79 Year
  Sex: Male

DRUGS (1)
  1. RANMARK [Suspect]
     Indication: PRODUCT USED FOR UNKNOWN INDICATION
     Dosage: 120 MG, Q4WK
     Route: 065
     Dates: start: 20120427

REACTIONS (1)
  - PYREXIA [None]
